FAERS Safety Report 10410832 (Version 1)
Quarter: 2014Q3

REPORT INFORMATION
  Report Type: Spontaneous
  Country: US (occurrence: US)
  Receive Date: 20140826
  Receipt Date: 20140826
  Transmission Date: 20150326
  Serious: Yes (Other)
  Sender: FDA-Public Use
  Company Number: US-BRISTOL-MYERS SQUIBB COMPANY-20133575

PATIENT
  Age: 32 Year
  Sex: Female

DRUGS (2)
  1. KENALOG-10 [Suspect]
     Active Substance: TRIAMCINOLONE ACETONIDE
  2. LIDOCAINE. [Concomitant]
     Active Substance: LIDOCAINE

REACTIONS (6)
  - Swollen tongue [Unknown]
  - Blood pressure decreased [Unknown]
  - Dyspnoea [Unknown]
  - Dizziness [Unknown]
  - Pruritus [Unknown]
  - Urticaria [Unknown]
